FAERS Safety Report 24309498 (Version 1)
Quarter: 2024Q3

REPORT INFORMATION
  Report Type: Spontaneous
  Country: AU (occurrence: None)
  Receive Date: 20240911
  Receipt Date: 20240911
  Transmission Date: 20241016
  Serious: Yes (Other)
  Sender: MDD OPERATIONS
  Company Number: AU-MDD US Operations-MDD202409-003304

PATIENT
  Age: 83 Year
  Sex: Male

DRUGS (4)
  1. APOMORPHINE HYDROCHLORIDE [Suspect]
     Active Substance: APOMORPHINE HYDROCHLORIDE
     Indication: Product used for unknown indication
     Dosage: NOT PROVIDED
     Route: 058
  2. AZILECT [Concomitant]
     Active Substance: RASAGILINE MESYLATE
     Dosage: NOT PROVIDED
  3. Sifrol Extended Release [Concomitant]
     Dosage: NOT PROVIDED
  4. STALEVO [Concomitant]
     Active Substance: CARBIDOPA\ENTACAPONE\LEVODOPA
     Dosage: NOT PROVIDED

REACTIONS (1)
  - Transient ischaemic attack [Unknown]
